FAERS Safety Report 10153821 (Version 1)
Quarter: 2014Q2

REPORT INFORMATION
  Report Type: Report from Study
  Country: CA (occurrence: CA)
  Receive Date: 20140506
  Receipt Date: 20140506
  Transmission Date: 20141212
  Serious: Yes (Other)
  Sender: FDA-Public Use
  Company Number: CA-ROCHE-1390505

PATIENT
  Sex: Male

DRUGS (7)
  1. PEGASYS [Suspect]
     Indication: CHRONIC HEPATITIS C
     Dosage: 0.5 ML PRE-FILLED SYRINGE
     Route: 058
     Dates: start: 20131025, end: 20140418
  2. COPEGUS [Suspect]
     Indication: CHRONIC HEPATITIS C
     Dosage: 42 TABLET/WEEK
     Route: 048
     Dates: start: 20131025, end: 20140424
  3. INCIVEK [Suspect]
     Indication: CHRONIC HEPATITIS C
     Route: 048
     Dates: start: 20131025, end: 20140117
  4. BUSCOPAN [Concomitant]
  5. MIRTAZAPINE [Concomitant]
  6. MAXERAN [Concomitant]
  7. TYLENOL [Concomitant]

REACTIONS (1)
  - Hepatitis C [Unknown]
